FAERS Safety Report 4269159-3 (Version None)
Quarter: 2004Q1

REPORT INFORMATION
  Report Type: 
  Country: None (occurrence: None)
  Receive Date: 20040109
  Receipt Date: 20031224
  Transmission Date: 20041129
  Serious: Yes (Hospitalization)
  Sender: FDA-Public Use
  Company Number: DSA_23785_2003

PATIENT
  Age: 55 Year
  Sex: Female

DRUGS (5)
  1. LORAZEPAM [Suspect]
     Dates: start: 20031220, end: 20031220
  2. METOPROLOL [Suspect]
     Dates: start: 20031220, end: 20031220
  3. REMERGIL [Suspect]
     Dates: start: 20031220, end: 20031220
  4. TAXILAN [Suspect]
     Dates: start: 20031220, end: 20031220
  5. ZYPREXA [Suspect]
     Dates: start: 20031220, end: 20031220

REACTIONS (3)
  - FATIGUE [None]
  - INTENTIONAL OVERDOSE [None]
  - MYDRIASIS [None]
